FAERS Safety Report 8853075 (Version 1)
Quarter: 2012Q4

REPORT INFORMATION
  Report Type: 
  Country: IT (occurrence: IT)
  Receive Date: 20121022
  Receipt Date: 20121022
  Transmission Date: 20130627
  Serious: Yes (Other)
  Sender: FDA-Public Use
  Company Number: PHHY2012IT093297

PATIENT
  Age: 41 Year
  Sex: Male

DRUGS (1)
  1. AMOXICILLIN/CLAVULANATE POTASSIUM [Suspect]
     Dosage: 2 g, UNK
     Route: 048
     Dates: start: 20120618, end: 20120619

REACTIONS (2)
  - Laryngeal oedema [Recovering/Resolving]
  - Urticaria [Recovering/Resolving]
